FAERS Safety Report 23517224 (Version 1)
Quarter: 2024Q1

REPORT INFORMATION
  Report Type: 
  Country: None (occurrence: None)
  Receive Date: 20240213
  Receipt Date: 20240213
  Transmission Date: 20240410
  Serious: No
  Sender: FDA-Public Use
  Company Number: US-ROCHE-2980162

PATIENT
  Weight: 50.394 kg

DRUGS (13)
  1. OCREVUS [Suspect]
     Active Substance: OCRELIZUMAB
     Dosage: 30MG/ML-20ML
     Dates: start: 201911
  2. BENADRYL [Suspect]
     Active Substance: DIPHENHYDRAMINE HYDROCHLORIDE
  3. SOLU-MEDROL [Concomitant]
     Active Substance: METHYLPREDNISOLONE SODIUM SUCCINATE
  4. BACLOFEN [Concomitant]
     Active Substance: BACLOFEN
  5. BOTOX [Concomitant]
     Active Substance: ONABOTULINUMTOXINA
     Dosage: 200 UNITE INJECTION
  6. BUSPIRONE [Concomitant]
     Active Substance: BUSPIRONE HYDROCHLORIDE
  7. CETIRIZINE [Concomitant]
     Active Substance: CETIRIZINE HYDROCHLORIDE
  8. ESCITALOPRAM [Concomitant]
     Active Substance: ESCITALOPRAM OXALATE
  9. HYDROXYZINE [Concomitant]
     Active Substance: HYDROXYZINE HYDROCHLORIDE
  10. METHYLPREDNISOLONE SODIUM SUCCINATE [Concomitant]
     Active Substance: METHYLPREDNISOLONE SODIUM SUCCINATE
  11. NYSTATIN [Concomitant]
     Active Substance: NYSTATIN
  12. PHENAZOPYRIDINE [Concomitant]
     Active Substance: PHENAZOPYRIDINE
  13. TRAMADOL [Concomitant]
     Active Substance: TRAMADOL\TRAMADOL HYDROCHLORIDE

REACTIONS (20)
  - Urinary tract infection [None]
  - General physical health deterioration [None]
  - Gait disturbance [None]
  - Feeling hot [None]
  - Bedridden [None]
  - Asthenia [None]
  - Muscular weakness [None]
  - Limb deformity [None]
  - Fall [None]
  - Bursitis [None]
  - Muscle spasms [None]
  - Muscle contracture [None]
  - Somnolence [None]
  - Platelet disorder [None]
  - Affect lability [None]
  - Muscle spasticity [None]
  - Myalgia [None]
  - Asthenia [None]
  - Slow speech [None]
  - COVID-19 [None]

NARRATIVE: CASE EVENT DATE: 20200201
